FAERS Safety Report 6453303-3 (Version None)
Quarter: 2009Q4

REPORT INFORMATION
  Report Type: 
  Country: None (occurrence: None)
  Receive Date: 20091123
  Receipt Date: 20091123
  Transmission Date: 20100525
  Serious: No
  Sender: FDA-Public Use
  Company Number: None

PATIENT
  Age: 7 Year
  Sex: Male
  Weight: 23 kg

DRUGS (1)
  1. TAMIFLU [Suspect]
     Indication: INFLUENZA
     Dosage: 60MG TWICE A DAY PO  2 DOSES
     Route: 048
     Dates: start: 20091030, end: 20091031

REACTIONS (4)
  - DELIRIUM [None]
  - EXCESSIVE EYE BLINKING [None]
  - MUSCLE TWITCHING [None]
  - VERTIGO [None]
